FAERS Safety Report 12210233 (Version 1)
Quarter: 2016Q1

REPORT INFORMATION
  Report Type: Spontaneous
  Country: US (occurrence: None)
  Receive Date: 20160324
  Receipt Date: 20160324
  Transmission Date: 20160526
  Serious: No
  Sender: FDA-Public Use
  Company Number: None

PATIENT
  Sex: Female

DRUGS (2)
  1. METFORMIN [Suspect]
     Active Substance: METFORMIN HYDROCHLORIDE
  2. GLIPIZIDE. [Suspect]
     Active Substance: GLIPIZIDE

REACTIONS (7)
  - Arterial occlusive disease [None]
  - Blood glucose abnormal [None]
  - Dyspepsia [None]
  - Blood glucose increased [None]
  - Fall [None]
  - Urinary tract infection [None]
  - Tremor [None]
